FAERS Safety Report 14610080 (Version 7)
Quarter: 2018Q3

REPORT INFORMATION
  Report Type: Spontaneous
  Country: US (occurrence: US)
  Receive Date: 20180307
  Receipt Date: 20180917
  Transmission Date: 20181010
  Serious: No
  Sender: FDA-Public Use
  Company Number: US-PFIZER INC-2018090021

PATIENT
  Age: 70 Year
  Sex: Female

DRUGS (1)
  1. XELJANZ XR [Suspect]
     Active Substance: TOFACITINIB CITRATE
     Dosage: 11 MG, UNK
     Dates: start: 201802, end: 201807

REACTIONS (9)
  - Nausea [Unknown]
  - Fall [Unknown]
  - Initial insomnia [Unknown]
  - Skin abrasion [Unknown]
  - Hyperphagia [Unknown]
  - Gastric disorder [Unknown]
  - Abdominal pain upper [Not Recovered/Not Resolved]
  - Flatulence [Unknown]
  - Asthenia [Unknown]

NARRATIVE: CASE EVENT DATE: 2018
